FAERS Safety Report 9227892 (Version 1)
Quarter: 2013Q2

REPORT INFORMATION
  Report Type: Spontaneous
  Country: US (occurrence: US)
  Receive Date: 20130412
  Receipt Date: 20130412
  Transmission Date: 20140414
  Serious: Yes (Hospitalization)
  Sender: FDA-Public Use
  Company Number: US-SANOFI-AVENTIS-2013SA037532

PATIENT
  Age: 50 Year
  Sex: Female

DRUGS (4)
  1. NASACORT AQ [Suspect]
     Indication: HYPERSENSITIVITY
     Route: 045
     Dates: start: 20130308
  2. NASACORT AQ [Suspect]
     Indication: HYPERSENSITIVITY
     Dosage: DOSAGE - 2 SPRAY EACH NOSTRIL
     Route: 045
  3. OTHER RESPIRATORY SYSTEM PRODUCTS [Concomitant]
  4. NASAL SPRAY [Concomitant]

REACTIONS (4)
  - Bronchitis [Unknown]
  - Cough [Unknown]
  - Upper-airway cough syndrome [Unknown]
  - Nasal congestion [Not Recovered/Not Resolved]
